FAERS Safety Report 20982472 (Version 1)
Quarter: 2022Q2

REPORT INFORMATION
  Report Type: Spontaneous
  Country: US (occurrence: US)
  Receive Date: 20220620
  Receipt Date: 20220620
  Transmission Date: 20220720
  Serious: No
  Sender: FDA-Public Use
  Company Number: US-NOVOPROD-917241

PATIENT
  Age: 41 Year

DRUGS (2)
  1. WEGOVY [Suspect]
     Active Substance: SEMAGLUTIDE
     Dosage: 0.5 MG AT 4TH WEEK
     Route: 065
  2. WEGOVY [Suspect]
     Active Substance: SEMAGLUTIDE
     Indication: Weight control
     Dosage: 0.25 MG (FOR 3 WEEKS)
     Route: 065

REACTIONS (4)
  - Decreased appetite [Unknown]
  - Dyspepsia [Unknown]
  - Constipation [Unknown]
  - Inappropriate schedule of product administration [Unknown]
